FAERS Safety Report 11440388 (Version 1)
Quarter: 2015Q3

REPORT INFORMATION
  Report Type: Spontaneous
  Country: US (occurrence: US)
  Receive Date: 20150901
  Receipt Date: 20150901
  Transmission Date: 20151125
  Serious: No
  Sender: FDA-Public Use
  Company Number: US-ROCHE-1099558

PATIENT
  Sex: Male

DRUGS (1)
  1. PEGASYS [Suspect]
     Active Substance: PEGINTERFERON ALFA-2A
     Indication: PRODUCT USED FOR UNKNOWN INDICATION
     Dosage: 180MCG/0.5ML
     Route: 065

REACTIONS (4)
  - Exposure via direct contact [Unknown]
  - Hypoaesthesia [Unknown]
  - Product quality issue [Unknown]
  - Nerve injury [Unknown]
